FAERS Safety Report 4449218-2 (Version None)
Quarter: 2004Q3

REPORT INFORMATION
  Report Type: 
  Country: None (occurrence: None)
  Receive Date: 20040910
  Receipt Date: 20040826
  Transmission Date: 20050211
  Serious: Yes (Hospitalization, Other)
  Sender: FDA-Public Use
  Company Number: 238928

PATIENT
  Age: 67 Year
  Sex: Female

DRUGS (5)
  1. VAGIFEM [Suspect]
     Indication: VULVOVAGINAL DRYNESS
     Dosage: 1 TAB 3X WEEK, VAGINAL
     Route: 067
     Dates: start: 20031001, end: 20040610
  2. ESTRACE [Concomitant]
  3. PROGESTERON [Concomitant]
  4. CITRACAL (CALCIUM CITRATE) [Concomitant]
  5. CENTRUM (MINERALS NOS, VITAMINS NOS) [Concomitant]

REACTIONS (3)
  - ABDOMINAL DISTENSION [None]
  - OVARIAN CANCER [None]
  - VOMITING [None]
